FAERS Safety Report 22661438 (Version 1)
Quarter: 2023Q2

REPORT INFORMATION
  Report Type: Spontaneous
  Country: US (occurrence: US)
  Receive Date: 20230630
  Receipt Date: 20230630
  Transmission Date: 20230721
  Serious: No
  Sender: FDA-Public Use
  Company Number: US-JAZZ PHARMACEUTICALS-2022-US-035691

PATIENT
  Sex: Male
  Weight: 31.746 kg

DRUGS (2)
  1. EPIDIOLEX [Suspect]
     Active Substance: CANNABIDIOL
     Indication: Lennox-Gastaut syndrome
     Dosage: 1.4ML MORNING, 1.6ML EVENING
     Route: 048
     Dates: start: 20221020
  2. EPIDIOLEX [Suspect]
     Active Substance: CANNABIDIOL
     Dosage: 1.5ML MORNING AND 2.0ML EVENING
     Route: 048

REACTIONS (1)
  - Seizure [Unknown]
